FAERS Safety Report 7715713-3 (Version None)
Quarter: 2011Q3

REPORT INFORMATION
  Report Type: 
  Country: None (occurrence: None)
  Receive Date: 20110829
  Receipt Date: 20110822
  Transmission Date: 20111222
  Serious: Yes (Disabling)
  Sender: FDA-Public Use
  Company Number: GB-PFIZER INC-2011194660

PATIENT
  Age: 33 Year
  Sex: Female
  Weight: 67 kg

DRUGS (1)
  1. AZITHROMYCIN [Suspect]
     Indication: INFECTION PROPHYLAXIS
     Dosage: 250 MG, 4X/DAY
     Route: 048
     Dates: start: 20110725, end: 20110725

REACTIONS (6)
  - ANXIETY [None]
  - CHILLS [None]
  - DYSGEUSIA [None]
  - INSOMNIA [None]
  - VOMITING [None]
  - DECREASED APPETITE [None]
